FAERS Safety Report 5282815-3 (Version None)
Quarter: 2007Q2

REPORT INFORMATION
  Report Type: 
  Country: None (occurrence: None)
  Receive Date: 20070402
  Receipt Date: 20070312
  Transmission Date: 20071010
  Serious: Yes (Other)
  Sender: FDA-Public Use
  Company Number: US-SANOFI-SYNTHELABO-A03200702291

PATIENT
  Sex: Female

DRUGS (4)
  1. AMBIEN [Suspect]
     Indication: INSOMNIA
     Dosage: 10 TO 15 MG AT HS
     Route: 048
  2. AMBIEN [Suspect]
     Route: 048
  3. AMBIEN [Suspect]
     Route: 048
  4. BIRTH CONTROL [Concomitant]
     Dosage: UNK
     Route: 048

REACTIONS (4)
  - AMNESIA [None]
  - DELIRIUM [None]
  - DRUG ABUSER [None]
  - DYSARTHRIA [None]
